FAERS Safety Report 24918977 (Version 1)
Quarter: 2025Q1

REPORT INFORMATION
  Report Type: Spontaneous
  Country: FR (occurrence: FR)
  Receive Date: 20250204
  Receipt Date: 20250204
  Transmission Date: 20250408
  Serious: Yes (Other)
  Sender: ROCHE
  Company Number: None

PATIENT
  Age: 47 Year
  Sex: Male
  Weight: 100 kg

DRUGS (16)
  1. RITUXIMAB [Suspect]
     Active Substance: RITUXIMAB
     Indication: Acute disseminated encephalomyelitis
     Route: 040
     Dates: start: 20241001, end: 20241001
  2. RITUXIMAB [Suspect]
     Active Substance: RITUXIMAB
     Route: 040
     Dates: start: 20240917, end: 20240917
  3. LANSOPRAZOLE [Suspect]
     Active Substance: LANSOPRAZOLE
     Indication: Complication associated with device
     Route: 050
     Dates: start: 20240923
  4. COTRIMOXAZOLE [Suspect]
     Active Substance: SULFAMETHOXAZOLE\TRIMETHOPRIM
     Indication: Antifungal prophylaxis
     Dosage: 800/160MG LUN MER VEN
     Route: 050
     Dates: start: 20250105, end: 20250121
  5. COTRIMOXAZOLE [Suspect]
     Active Substance: SULFAMETHOXAZOLE\TRIMETHOPRIM
     Dosage: 800/160MG LUN MER VEN
     Route: 050
     Dates: start: 20241021, end: 20241106
  6. PIPERACILLIN AND TAZOBACTAM [Suspect]
     Active Substance: PIPERACILLIN SODIUM\TAZOBACTAM SODIUM
     Indication: Pneumonia
     Route: 050
     Dates: start: 20241205
  7. ATARAX [Suspect]
     Active Substance: HYDROXYZINE HYDROCHLORIDE
     Indication: Anxiety
     Dosage: 12,5-12,5-25MG
     Route: 050
     Dates: start: 20241220
  8. LOVENOX [Suspect]
     Active Substance: ENOXAPARIN SODIUM
     Indication: Thrombosis prophylaxis
     Route: 058
     Dates: start: 20240909
  9. RAMIPRIL [Suspect]
     Active Substance: RAMIPRIL
     Indication: Hypertension
     Route: 050
     Dates: start: 20250102, end: 20250121
  10. ACIDE ALENDRONIQUE TEVA 70 mg [Concomitant]
     Indication: Osteoporosis
     Dosage: LUNDIS
     Route: 050
     Dates: start: 20241205
  11. CALCIUM\CHOLECALCIFEROL [Concomitant]
     Active Substance: CALCIUM\CHOLECALCIFEROL
     Indication: Osteoporosis
     Dosage: 500/400UI 1-0-1
     Route: 050
     Dates: start: 20241205
  12. AMLODIPINE BESYLATE [Concomitant]
     Active Substance: AMLODIPINE BESYLATE
     Indication: Hypertension
     Route: 050
     Dates: start: 20240918
  13. HYDROCORTISONE ROUSSEL 10 mg [Concomitant]
     Indication: Acute disseminated encephalomyelitis
     Route: 050
     Dates: start: 20240918
  14. ABASAGLAR 100 [Concomitant]
     Indication: Steroid diabetes
     Route: 058
     Dates: start: 20241018
  15. DOLIPRANE [Concomitant]
     Active Substance: ACETAMINOPHEN
     Indication: Pain
     Route: 050
     Dates: start: 202411
  16. DEXTROSE MONOHYDRATE\POTASSIUM CHLORIDE\SODIUM CHLORIDE [Concomitant]
     Active Substance: DEXTROSE MONOHYDRATE\POTASSIUM CHLORIDE\SODIUM CHLORIDE
     Indication: Parenteral nutrition
     Dosage: AVEC VITB6, NURTYELT, CERNEVIT, KCL
     Route: 040
     Dates: start: 20250113

REACTIONS (1)
  - Agranulocytosis [Not Recovered/Not Resolved]

NARRATIVE: CASE EVENT DATE: 20250121
